FAERS Safety Report 6236789-9 (Version None)
Quarter: 2009Q2

REPORT INFORMATION
  Report Type: 
  Country: None (occurrence: None)
  Receive Date: 20090619
  Receipt Date: 20090617
  Transmission Date: 20091009
  Serious: Yes (Death, Hospitalization)
  Sender: FDA-Public Use
  Company Number: PHHY2009AU24041

PATIENT
  Sex: Male

DRUGS (1)
  1. CLOZARIL [Suspect]
     Dosage: 900 UNK, UNK
     Dates: start: 19950307, end: 20090510

REACTIONS (2)
  - DEATH [None]
  - SCHIZOPHRENIA [None]
